FAERS Safety Report 25663649 (Version 4)
Quarter: 2025Q3

REPORT INFORMATION
  Report Type: Spontaneous
  Country: VN (occurrence: VN)
  Receive Date: 20250811
  Receipt Date: 20250915
  Transmission Date: 20251020
  Serious: Yes (Hospitalization, Other)
  Sender: ASTELLAS
  Company Number: VN-ASTELLAS-2025-AER-042545

PATIENT
  Age: 35 Year
  Sex: Female

DRUGS (4)
  1. XOSPATA [Suspect]
     Active Substance: GILTERITINIB
     Indication: FLT3 gene mutation
     Dosage: (3 TABLETS/DAY)
     Route: 065
     Dates: start: 20241024
  2. XOSPATA [Suspect]
     Active Substance: GILTERITINIB
     Indication: Acute myeloid leukaemia recurrent
     Route: 065
  3. XOSPATA [Suspect]
     Active Substance: GILTERITINIB
     Route: 065
  4. XOSPATA [Suspect]
     Active Substance: GILTERITINIB
     Dosage: (5 TABLETS/DAY)
     Route: 065

REACTIONS (4)
  - Febrile infection [Recovered/Resolved]
  - Drug-induced liver injury [Recovered/Resolved]
  - Granulocytopenia [Recovered/Resolved]
  - Mixed anxiety and depressive disorder [Recovered/Resolved]
